FAERS Safety Report 5378151-7 (Version None)
Quarter: 2007Q3

REPORT INFORMATION
  Report Type: 
  Country: None (occurrence: None)
  Receive Date: 20070705
  Receipt Date: 20070627
  Transmission Date: 20080115
  Serious: Yes (Other)
  Sender: FDA-Public Use
  Company Number: PHBS2007JP09428

PATIENT
  Age: 60 Year
  Sex: Female

DRUGS (10)
  1. ZOMETA [Suspect]
     Indication: METASTASES TO BONE
     Dosage: 4 MG, UNK
     Route: 042
     Dates: start: 20060515, end: 20070416
  2. LASIX [Concomitant]
     Indication: OEDEMA
     Dosage: 80 MG/DAY
     Route: 048
     Dates: start: 20050128
  3. OXYCONTIN [Concomitant]
  4. TS 1 [Concomitant]
  5. DUROTEP JANSSEN [Concomitant]
     Indication: CANCER PAIN
     Dates: start: 20060815
  6. PREDNISOLONE [Concomitant]
  7. NOVAMIN [Concomitant]
     Indication: NAUSEA
     Dosage: 10 MG/DAY
     Route: 048
     Dates: start: 20060724
  8. MAGNESIUM OXIDE [Concomitant]
     Indication: CONSTIPATION
     Dosage: 2 G/DAY
     Route: 048
     Dates: start: 20051121
  9. PROCTOSEDYL [Concomitant]
     Indication: HAEMORRHOIDS
     Dates: start: 20061030
  10. HERCEPTIN [Concomitant]
     Indication: BREAST CANCER METASTATIC
     Dates: start: 20020809

REACTIONS (4)
  - DENTAL TREATMENT [None]
  - OSTEONECROSIS [None]
  - TOOTH EXTRACTION [None]
  - X-RAY ABNORMAL [None]
